FAERS Safety Report 6533802-6 (Version None)
Quarter: 2010Q1

REPORT INFORMATION
  Report Type: 
  Country: None (occurrence: None)
  Receive Date: 20100111
  Receipt Date: 20090330
  Transmission Date: 20100710
  Serious: No
  Sender: FDA-Public Use
  Company Number: US-ABBOTT-09P-163-0565626-00

PATIENT
  Sex: Female

DRUGS (1)
  1. HYDROCODONE [Suspect]
     Indication: POSTOPERATIVE ANALGESIA
     Dates: start: 20070101, end: 20070101

REACTIONS (5)
  - DIZZINESS [None]
  - HEADACHE [None]
  - HYPERHIDROSIS [None]
  - NAUSEA [None]
  - PRURITUS [None]
